FAERS Safety Report 8003530-9 (Version None)
Quarter: 2011Q4

REPORT INFORMATION
  Report Type: 
  Country: None (occurrence: None)
  Receive Date: 20111222
  Receipt Date: 20111219
  Transmission Date: 20120403
  Serious: Yes (Other)
  Sender: FDA-Public Use
  Company Number: US-PFIZER INC-2011308766

PATIENT
  Sex: Male
  Weight: 181 kg

DRUGS (2)
  1. VIAGRA [Suspect]
     Indication: SEXUAL DYSFUNCTION
     Dosage: 100 MG, AS NEEDED
     Route: 048
     Dates: start: 19760101
  2. VIAGRA [Suspect]
     Dosage: MORE THAN 3 PILLS
     Dates: start: 20111216

REACTIONS (2)
  - INCORRECT DOSE ADMINISTERED [None]
  - ERECTION INCREASED [None]
